FAERS Safety Report 4922621-X (Version None)
Quarter: 2006Q1

REPORT INFORMATION
  Report Type: 
  Country: None (occurrence: None)
  Receive Date: 20060223
  Receipt Date: 20060223
  Transmission Date: 20060701
  Serious: Yes (Hospitalization)
  Sender: FDA-Public Use
  Company Number: None

PATIENT
  Age: 78 Year
  Sex: Male

DRUGS (1)
  1. TARCEVA [Suspect]
     Indication: PROSTATE CANCER
     Dosage: 150 MG PO QD
     Route: 048
     Dates: start: 20060111

REACTIONS (2)
  - HAEMATURIA [None]
  - HAEMOGLOBIN DECREASED [None]
